FAERS Safety Report 6946139-8 (Version None)
Quarter: 2010Q3

REPORT INFORMATION
  Report Type: 
  Country: None (occurrence: None)
  Receive Date: 20100827
  Receipt Date: 20100825
  Transmission Date: 20110219
  Serious: No
  Sender: FDA-Public Use
  Company Number: US-PFIZER INC-2010049439

PATIENT
  Sex: Male
  Weight: 65.76 kg

DRUGS (4)
  1. VIAGRA [Suspect]
     Indication: PREMATURE EJACULATION
     Dosage: 50 MG, AS NEEDED
     Route: 048
     Dates: start: 20100415
  2. VIAGRA [Suspect]
     Indication: ERECTILE DYSFUNCTION
     Dosage: 50 MG, AS NEEDED
     Route: 048
     Dates: start: 20100701, end: 20100101
  3. INSULIN [Concomitant]
     Indication: DIABETES MELLITUS
     Dosage: 1000 MG, 2X/DAY
  4. VITAMINS [Concomitant]
     Dosage: UNK

REACTIONS (1)
  - DRUG INEFFECTIVE [None]
